FAERS Safety Report 15790311 (Version 1)
Quarter: 2019Q1

REPORT INFORMATION
  Report Type: Spontaneous
  Country: CN (occurrence: CN)
  Receive Date: 20190104
  Receipt Date: 20190104
  Transmission Date: 20190417
  Serious: Yes (Other)
  Sender: FDA-Public Use
  Company Number: CN-PFIZER INC-2019001816

PATIENT
  Age: 79 Year
  Sex: Male

DRUGS (2)
  1. XINGNAOJING [Concomitant]
     Indication: NEOPLASM MALIGNANT
     Dosage: 20 ML, 1X/DAY
     Route: 041
     Dates: start: 20181015, end: 20181019
  2. TAZOCIN [Suspect]
     Active Substance: PIPERACILLIN SODIUM\TAZOBACTAM SODIUM
     Indication: NEOPLASM MALIGNANT
     Dosage: 4.5 G, 3X/DAY
     Route: 041
     Dates: start: 20181017, end: 20181024

REACTIONS (1)
  - Hepatic enzyme abnormal [Recovering/Resolving]

NARRATIVE: CASE EVENT DATE: 20181018
